FAERS Safety Report 5296731-4 (Version None)
Quarter: 2007Q2

REPORT INFORMATION
  Report Type: 
  Country: None (occurrence: None)
  Receive Date: 20070413
  Receipt Date: 20070404
  Transmission Date: 20071010
  Serious: Yes (Hospitalization)
  Sender: FDA-Public Use
  Company Number: FR-PFIZER INC-2007026653

PATIENT
  Age: 71 Year
  Sex: Female

DRUGS (3)
  1. ARTHROTEC [Suspect]
     Indication: BACK PAIN
     Dosage: TEXT:2 DF
     Route: 048
     Dates: start: 20070216, end: 20070217
  2. ARTHROTEC [Suspect]
     Indication: BONE PAIN
  3. ARTHROTEC [Suspect]
     Indication: SCIATICA

REACTIONS (2)
  - DERMATITIS BULLOUS [None]
  - TOXIC SKIN ERUPTION [None]
